FAERS Safety Report 4913808-0 (Version None)
Quarter: 2006Q1

REPORT INFORMATION
  Report Type: 
  Country: None (occurrence: None)
  Receive Date: 20060216
  Receipt Date: 20060211
  Transmission Date: 20060701
  Serious: Yes (Death)
  Sender: FDA-Public Use
  Company Number: FR-AVENTIS-200610561FR

PATIENT
  Age: 83 Year
  Sex: Female

DRUGS (1)
  1. LOVENOX [Suspect]
     Route: 058
     Dates: start: 20050701, end: 20050801

REACTIONS (1)
  - CARDIAC DISORDER [None]
